FAERS Safety Report 22616137 (Version 1)
Quarter: 2023Q2

REPORT INFORMATION
  Report Type: Other
  Country: None (occurrence: US)
  Receive Date: 20230619
  Receipt Date: 20230619
  Transmission Date: 20230722
  Serious: Yes (Other)
  Sender: FDA-Public Use
  Company Number: US-B.Braun Medical Inc.-2142843

PATIENT
  Age: 34 Year
  Sex: Male

DRUGS (6)
  1. METRONIDAZOLE [Suspect]
     Active Substance: METRONIDAZOLE
     Indication: Infection
  2. CIPROFLOXACIN [Suspect]
     Active Substance: CIPROFLOXACIN
  3. INFLIXIMAB [Concomitant]
     Active Substance: INFLIXIMAB
  4. USTEKINUMAB [Concomitant]
     Active Substance: USTEKINUMAB
  5. TACROLIMUS [Concomitant]
     Active Substance: TACROLIMUS
  6. AZATHIOPRINE [Concomitant]
     Active Substance: AZATHIOPRINE

REACTIONS (1)
  - Drug ineffective [Unknown]
